FAERS Safety Report 8185261-8 (Version None)
Quarter: 2012Q1

REPORT INFORMATION
  Report Type: 
  Country: None (occurrence: None)
  Receive Date: 20120305
  Receipt Date: 20120223
  Transmission Date: 20120608
  Serious: Yes (Other)
  Sender: FDA-Public Use
  Company Number: PHHY2012IT015494

PATIENT
  Sex: Female

DRUGS (2)
  1. ZOMETA [Suspect]
     Indication: METASTASES TO BONE
     Dosage: 4 MG, MONTHLY DOSE
     Route: 042
     Dates: start: 20020701, end: 20051001
  2. AREDIA [Suspect]
     Indication: METASTASES TO BONE
     Dates: start: 20020701, end: 20051001

REACTIONS (1)
  - OSTEONECROSIS OF JAW [None]
